FAERS Safety Report 12188652 (Version 1)
Quarter: 2016Q1

REPORT INFORMATION
  Report Type: Report from Study
  Country: IN (occurrence: IN)
  Receive Date: 20160317
  Receipt Date: 20160317
  Transmission Date: 20160526
  Serious: Yes (Other)
  Sender: FDA-Public Use
  Company Number: IN-ABBVIE-16P-078-1585550-00

PATIENT
  Age: 32 Year
  Sex: Female

DRUGS (1)
  1. THYRONORM [Suspect]
     Active Substance: LEVOTHYROXINE
     Indication: HYPOTHYROIDISM
     Route: 065
     Dates: start: 20150806

REACTIONS (3)
  - Caesarean section [Recovered/Resolved]
  - Maternal exposure during pregnancy [Unknown]
  - Amniorrhoea [Recovered/Resolved]

NARRATIVE: CASE EVENT DATE: 2015
